FAERS Safety Report 8050832-6 (Version None)
Quarter: 2012Q1

REPORT INFORMATION
  Report Type: 
  Country: None (occurrence: None)
  Receive Date: 20120117
  Receipt Date: 20120105
  Transmission Date: 20120608
  Serious: Yes (Other)
  Sender: FDA-Public Use
  Company Number: PHHY2012NZ001236

PATIENT
  Age: 50 Year
  Sex: Female

DRUGS (7)
  1. CLOZAPINE [Suspect]
     Dosage: 75 MG, DAILY
  2. BENDROFLUAZIDE [Concomitant]
     Dosage: 2.5 MG, DAILY
  3. BENZTROPINE MESYLATE [Concomitant]
     Dosage: 2 MG, BID
  4. VALPROATE SODIUM [Concomitant]
     Dosage: 500 MG, BID
  5. METOPROLOL - SLOW RELEASE [Concomitant]
     Dosage: 95 MG, BID
  6. CLOZAPINE [Suspect]
     Indication: SCHIZOAFFECTIVE DISORDER
     Dosage: 300 MG, DAILY
  7. FELODIPINE [Concomitant]
     Dosage: 10 MG, DAILY

REACTIONS (9)
  - URINARY INCONTINENCE [None]
  - ANTIPSYCHOTIC DRUG LEVEL INCREASED [None]
  - PLEURAL EFFUSION [None]
  - DYSPNOEA [None]
  - DYSARTHRIA [None]
  - URINARY TRACT INFECTION [None]
  - COUGH [None]
  - SOMNOLENCE [None]
  - NEUTROPHIL COUNT INCREASED [None]
